FAERS Safety Report 6482712-1 (Version None)
Quarter: 2009Q4

REPORT INFORMATION
  Report Type: 
  Country: None (occurrence: None)
  Receive Date: 20091209
  Receipt Date: 20091204
  Transmission Date: 20100525
  Serious: Yes (Disabling)
  Sender: FDA-Public Use
  Company Number: FR-SANOFI-AVENTIS-200912167FR

PATIENT
  Age: 73 Year
  Sex: Male

DRUGS (3)
  1. GLIMEPIRIDE [Suspect]
     Dosage: DOSE UNIT: 1 MG
     Route: 048
     Dates: start: 20090201
  2. DEPAKOTE [Concomitant]
     Indication: BIPOLAR DISORDER
     Dosage: DOSE UNIT: 500 MG
     Route: 048
  3. CRESTOR [Concomitant]
     Indication: DRUG USE FOR UNKNOWN INDICATION
     Route: 048

REACTIONS (2)
  - CONDITION AGGRAVATED [None]
  - MUSCULAR WEAKNESS [None]
